FAERS Safety Report 18389259 (Version 4)
Quarter: 2021Q1

REPORT INFORMATION
  Report Type: Report from Study
  Country: CZ (occurrence: CZ)
  Receive Date: 20201015
  Receipt Date: 20210104
  Transmission Date: 20210419
  Serious: Yes (Hospitalization)
  Sender: FDA-Public Use
  Company Number: CZ-MORPHOSYS US-2020-MOR000554-CZ

PATIENT

DRUGS (12)
  1. ONDANSETRON [Concomitant]
     Active Substance: ONDANSETRON
     Indication: PROPHYLAXIS OF NAUSEA AND VOMITING
     Dosage: 8 MILLIGRAM, SINGLE
     Route: 042
     Dates: start: 20200512, end: 20200512
  2. TAFASITAMAB [Suspect]
     Active Substance: TAFASITAMAB
     Dosage: 12 MILLIGRAM/KILOGRAM, SINGLE
     Route: 042
     Dates: start: 20200521, end: 20200521
  3. KALNORMIN [Concomitant]
     Active Substance: POTASSIUM CHLORIDE
     Indication: HYPOKALAEMIA
     Dosage: 1 GRAM, QD
     Route: 048
     Dates: start: 2019, end: 20200518
  4. LAMIVUDINUM (ZEFFIX) [Concomitant]
     Indication: HEPATITIS B
     Dosage: 100 MILLIGRAM, QD
     Route: 048
     Dates: start: 20200506
  5. FILGRASTIM [Concomitant]
     Active Substance: FILGRASTIM
     Indication: NEUTROPENIA
     Dosage: 48 MU, QD
     Route: 058
     Dates: start: 20200517, end: 20200519
  6. PANTOPRAZOLE (CONTROLOC) [Concomitant]
     Indication: PROPHYLAXIS AGAINST GASTROINTESTINAL ULCER
     Dosage: 40 MILLIGRAM, QD
     Route: 048
     Dates: start: 20200506, end: 20200516
  7. TAFASITAMAB [Suspect]
     Active Substance: TAFASITAMAB
     Indication: DIFFUSE LARGE B-CELL LYMPHOMA
     Dosage: 12 MILLIGRAM/KILOGRAM, SINGLE
     Route: 042
     Dates: start: 20200512, end: 20200512
  8. TAFASITAMAB [Suspect]
     Active Substance: TAFASITAMAB
     Dosage: 12 MILLIGRAM/KILOGRAM, SINGLE
     Route: 042
     Dates: start: 20200526, end: 20200526
  9. BROMAZEPAMUM (LEXAURIN) [Concomitant]
     Indication: ANXIETY DISORDER
     Dosage: 1.5 MILLIGRAM, PRN
     Route: 048
     Dates: start: 20200508, end: 20200513
  10. R?CHOP [Suspect]
     Active Substance: CYCLOPHOSPHAMIDE\DOXORUBICIN\PREDNISONE\RITUXIMAB\VINCRISTINE
     Indication: DIFFUSE LARGE B-CELL LYMPHOMA
     Dosage: UNK
     Dates: start: 20200512
  11. SERTRALINUM (SERTIVAN) [Concomitant]
     Indication: ANXIETY DISORDER
     Dosage: 50 MILLIGRAM, QD
     Route: 048
     Dates: start: 20200508
  12. VALACICLOVIRUM [Concomitant]
     Active Substance: VALACYCLOVIR HYDROCHLORIDE
     Indication: INFECTION PROPHYLAXIS
     Dosage: 500 MILLIGRAM, QD
     Route: 048
     Dates: start: 20200506

REACTIONS (1)
  - Inappropriate antidiuretic hormone secretion [Recovered/Resolved]

NARRATIVE: CASE EVENT DATE: 20200519
